FAERS Safety Report 9234226 (Version 1)
Quarter: 2013Q2

REPORT INFORMATION
  Report Type: Spontaneous
  Country: BE (occurrence: BE)
  Receive Date: 20130416
  Receipt Date: 20130416
  Transmission Date: 20140414
  Serious: Yes (Death, Hospitalization)
  Sender: FDA-Public Use
  Company Number: BE-PERRIGO-13BE003666

PATIENT
  Age: 65 Year
  Sex: Female

DRUGS (2)
  1. LORAZEPAM CONCENTRATE RX 2 MG/ML 1J9 [Suspect]
     Indication: PRODUCT USED FOR UNKNOWN INDICATION
     Dosage: 40 MG, SINGLE
     Route: 048
  2. VENLAFAXINE [Suspect]
     Indication: PRODUCT USED FOR UNKNOWN INDICATION
     Dosage: 7000 MG, SINGLE
     Route: 048

REACTIONS (12)
  - Cardiogenic shock [Fatal]
  - Overdose [Unknown]
  - Coma [Unknown]
  - Rhythm idioventricular [Unknown]
  - Electrocardiogram QRS complex prolonged [Unknown]
  - Low cardiac output syndrome [Unknown]
  - Cardiac failure acute [None]
  - Body temperature decreased [None]
  - Oxygen saturation decreased [None]
  - Heart rate increased [None]
  - Blood lactic acid increased [None]
  - Blood creatinine increased [None]
